FAERS Safety Report 8122762 (Version 2)
Quarter: 2012Q4

REPORT INFORMATION
  Report Type: 
  Country: US (occurrence: US)
  Receive Date: 20110906
  Receipt Date: 20120927
  Transmission Date: 20130627
  Serious: No
  Sender: FDA-Public Use
  Company Number: US-AMGEN-USASP2011041106

PATIENT
  Age: 59 Year
  Sex: Female
  Weight: 60.77 kg

DRUGS (11)
  1. PROLIA [Suspect]
     Indication: OSTEOPOROSIS POSTMENOPAUSAL
     Dosage: 60 mg, q6mo
     Dates: start: 20101221, end: 20120606
  2. CYMBALTA [Concomitant]
     Dosage: UNK
  3. AMPHETAMINE MIXED SALTS [Concomitant]
  4. CLARINEX                           /01202601/ [Concomitant]
  5. MULTIVITAMIN                       /00097801/ [Concomitant]
  6. CALCIUM [Concomitant]
  7. VITAMIN D /00107901/ [Concomitant]
  8. MAGNESIUM [Concomitant]
  9. FISH OIL [Concomitant]
  10. COQ10 [Concomitant]
  11. SELENIUM [Concomitant]

REACTIONS (3)
  - Viral infection [Not Recovered/Not Resolved]
  - Nausea [Not Recovered/Not Resolved]
  - Hyperhidrosis [Not Recovered/Not Resolved]
